FAERS Safety Report 9611779 (Version 3)
Quarter: 2013Q4

REPORT INFORMATION
  Report Type: Spontaneous
  Country: NL (occurrence: NL)
  Receive Date: 20131010
  Receipt Date: 20131017
  Transmission Date: 20140711
  Serious: Yes (Life-Threatening)
  Sender: FDA-Public Use
  Company Number: NL-JNJFOC-PRIUSA1999001083

PATIENT
  Age: 77 Year
  Sex: Male

DRUGS (2)
  1. PEVARYL [Suspect]
     Indication: FUNGAL INFECTION
     Route: 003
  2. SINTROM [Interacting]
     Indication: PRODUCT USED FOR UNKNOWN INDICATION
     Route: 048

REACTIONS (2)
  - Prothrombin time prolonged [Unknown]
  - Drug interaction [Unknown]
